FAERS Safety Report 14406644 (Version 1)
Quarter: 2018Q1

REPORT INFORMATION
  Report Type: Spontaneous
  Country: US (occurrence: US)
  Receive Date: 20180116
  Receipt Date: 20180116
  Transmission Date: 20180509
  Serious: No
  Sender: FDA-Public Use
  Company Number: None

PATIENT
  Age: 58 Year
  Sex: Male

DRUGS (1)
  1. ZYTIGA [Suspect]
     Active Substance: ABIRATERONE ACETATE
     Indication: PROSTATE CANCER
     Dosage: TAKE 4 TABLETS (1000 MG TOTAL) ONCE DAILY MOUTH??11/09/2017  15-JAN-2017
     Route: 048
     Dates: start: 20171109

REACTIONS (1)
  - Rash [None]

NARRATIVE: CASE EVENT DATE: 20180115
